FAERS Safety Report 4657023-7 (Version None)
Quarter: 2005Q2

REPORT INFORMATION
  Report Type: 
  Country: None (occurrence: None)
  Receive Date: 20050509
  Receipt Date: 20050429
  Transmission Date: 20051028
  Serious: Yes (Hospitalization)
  Sender: FDA-Public Use
  Company Number: GXKR2005CH00964

PATIENT
  Age: 58 Year
  Sex: Male

DRUGS (9)
  1. FLUOXETINE SANDOZ (NGX) (FLUOXETINE) [Suspect]
     Dosage: 20 MG, QD, ORAL
     Route: 048
  2. TRUXAL (CHLORPROTHIXENE HYDROCHLORIDE) [Suspect]
     Indication: SCHIZOAFFECTIVE DISORDER
     Dosage: 65 MG, QD, ORAL
     Route: 048
     Dates: start: 19950101
  3. REMERON [Suspect]
     Dosage: 30 MG, QD, ORAL
     Route: 048
     Dates: start: 20050301
  4. LITHIOFOR (LITHIUM SULFATE) [Suspect]
     Dosage: 0.5 DF, QD, ORAL
     Route: 048
  5. BLOPRESS (CANDESARTAN CILEXETIL) [Suspect]
     Dosage: 8 MG, QD, ORAL
     Route: 048
  6. THROMBACE NEO (ACETYSALICYLIC ACID) [Concomitant]
  7. SIMCORE (SIMVASTATIN) [Concomitant]
  8. ESTROFEM (ESTRADIOL, ESTRIOL) [Concomitant]
  9. LEVOTHYROXINE SODIUM (ELTROXIN) [Concomitant]

REACTIONS (4)
  - AKATHISIA [None]
  - DRUG INTERACTION [None]
  - EXTRAPYRAMIDAL DISORDER [None]
  - TREMOR [None]
